FAERS Safety Report 4681610-3 (Version None)
Quarter: 2005Q2

REPORT INFORMATION
  Report Type: 
  Country: None (occurrence: None)
  Receive Date: 20050602
  Receipt Date: 20050516
  Transmission Date: 20051028
  Serious: Yes (Hospitalization, Other)
  Sender: FDA-Public Use
  Company Number: US_0502113289

PATIENT
  Age: 34 Year
  Sex: Male
  Weight: 68 kg

DRUGS (4)
  1. ZYPREXA [Suspect]
     Dates: start: 20010101, end: 20030101
  2. XANAX (ALPRAZOLAM DUM) [Concomitant]
  3. PAXIL [Concomitant]
  4. REMERON (MIRTAZAPINE  ORIFARM) [Concomitant]

REACTIONS (9)
  - ALCOHOLIC PANCREATITIS [None]
  - CHOLELITHIASIS [None]
  - ILEUS [None]
  - INTESTINAL OBSTRUCTION [None]
  - LUNG INFILTRATION [None]
  - PANCREATIC NECROSIS [None]
  - PANCREATITIS [None]
  - PANCREATITIS ACUTE [None]
  - SMALL INTESTINAL OBSTRUCTION [None]
